FAERS Safety Report 4821991-0 (Version None)
Quarter: 2005Q4

REPORT INFORMATION
  Report Type: 
  Country: None (occurrence: None)
  Receive Date: 20051107
  Receipt Date: 20051025
  Transmission Date: 20060501
  Serious: Yes (Life-Threatening, Hospitalization)
  Sender: FDA-Public Use
  Company Number: GB-JNJFOC-20050906230

PATIENT
  Sex: Male
  Weight: 52 kg

DRUGS (4)
  1. RISPERDAL CONSTA [Suspect]
     Indication: SCHIZOPHRENIA
     Dosage: START DATE: PRE-JAN 2005
     Route: 030
  2. RISPERIDONE [Concomitant]
  3. DISULFIRAM [Concomitant]
     Dates: end: 20050905
  4. ZOPICLONE [Concomitant]
     Indication: SEDATION

REACTIONS (8)
  - BLOOD GLUCOSE DECREASED [None]
  - DEATH OF PARENT [None]
  - EXTRAPYRAMIDAL DISORDER [None]
  - NEUROLEPTIC MALIGNANT SYNDROME [None]
  - NUTRITIONAL CONDITION ABNORMAL [None]
  - ORAL INTAKE REDUCED [None]
  - SCHIZOPHRENIA, CATATONIC TYPE [None]
  - STRESS [None]
